FAERS Safety Report 22098178 (Version 1)
Quarter: 2023Q1

REPORT INFORMATION
  Report Type: Spontaneous
  Country: US (occurrence: US)
  Receive Date: 20230315
  Receipt Date: 20230315
  Transmission Date: 20230418
  Serious: No
  Sender: FDA-Public Use
  Company Number: US-STRIDES ARCOLAB LIMITED-2022SP002252

PATIENT
  Sex: Female

DRUGS (6)
  1. LEVETIRACETAM [Suspect]
     Active Substance: LEVETIRACETAM
     Indication: Jeavons syndrome
     Dosage: UNK
     Route: 065
  2. ETHOSUXIMIDE [Suspect]
     Active Substance: ETHOSUXIMIDE
     Indication: Jeavons syndrome
     Dosage: UNK
     Route: 065
  3. TOPIRAMATE [Concomitant]
     Active Substance: TOPIRAMATE
     Indication: Jeavons syndrome
     Dosage: UNK
     Route: 065
  4. RUFINAMIDE [Concomitant]
     Active Substance: RUFINAMIDE
     Indication: Jeavons syndrome
     Dosage: UNK
     Route: 065
  5. VALPROATE [Concomitant]
     Active Substance: VALPROIC ACID
     Indication: Jeavons syndrome
     Dosage: UNK
     Route: 065
  6. ZONISAMIDE [Concomitant]
     Active Substance: ZONISAMIDE
     Indication: Jeavons syndrome
     Dosage: UNK
     Route: 065

REACTIONS (2)
  - Anger [Unknown]
  - Off label use [Unknown]
